FAERS Safety Report 15265612 (Version 1)
Quarter: 2018Q3

REPORT INFORMATION
  Report Type: Spontaneous
  Country: US (occurrence: US)
  Receive Date: 20180724
  Receipt Date: 20180724
  Transmission Date: 20181010
  Serious: Yes (Disabling)
  Sender: FDA-Public Use
  Company Number: None

PATIENT
  Age: 37 Year
  Sex: Female
  Weight: 60.75 kg

DRUGS (1)
  1. BANANA BOAT (AVOBENZONE\OCTOCRYLENE\OXYBENZONE) [Suspect]
     Active Substance: AVOBENZONE\OCTOCRYLENE\OXYBENZONE
     Indication: SUNBURN

REACTIONS (6)
  - Malaise [None]
  - Accidental exposure to product [None]
  - Cough [None]
  - Device use issue [None]
  - Wrong technique in device usage process [None]
  - Product taste abnormal [None]

NARRATIVE: CASE EVENT DATE: 20180722
